FAERS Safety Report 4286074-X (Version None)
Quarter: 2004Q1

REPORT INFORMATION
  Report Type: 
  Country: None (occurrence: None)
  Receive Date: 20040202
  Receipt Date: 20040202
  Transmission Date: 20041129
  Serious: No
  Sender: FDA-Public Use
  Company Number: None

PATIENT
  Age: 36 Year

DRUGS (11)
  1. NALOXONE [Suspect]
     Indication: CONSTIPATION
     Dosage: 4 MG NGT X 1
     Dates: start: 20030908
  2. ALBUTEROL [Concomitant]
  3. BACITRACIN [Concomitant]
  4. CEFEPIME [Concomitant]
  5. ENOXAPARIN SODIUM [Concomitant]
  6. ERYTHROMYCIN [Concomitant]
  7. IPRATROPIUM BROMIDE [Concomitant]
  8. OCULAR LUBRICANT [Concomitant]
  9. SENNA [Concomitant]
  10. SUCRALFATE [Concomitant]
  11. VANCOMYCIN [Concomitant]

REACTIONS (3)
  - HEART RATE INCREASED [None]
  - PAIN [None]
  - RESPIRATORY RATE INCREASED [None]
